FAERS Safety Report 14639817 (Version 1)
Quarter: 2018Q1

REPORT INFORMATION
  Report Type: Spontaneous
  Country: FR (occurrence: FR)
  Receive Date: 20180315
  Receipt Date: 20180315
  Transmission Date: 20180509
  Serious: Yes (Hospitalization)
  Sender: FDA-Public Use
  Company Number: FR-MERCK KGAA-2043796

PATIENT
  Age: 47 Year
  Sex: Female

DRUGS (4)
  1. DOLIPRANE [Concomitant]
     Active Substance: ACETAMINOPHEN
  2. NOVOTHYROX [Suspect]
     Active Substance: LEVOTHYROXINE SODIUM
     Dates: start: 201704
  3. LEXOMIL [Concomitant]
     Active Substance: BROMAZEPAM
  4. NOVOTHYROX [Suspect]
     Active Substance: LEVOTHYROXINE SODIUM
     Indication: POST PROCEDURAL HYPOTHYROIDISM
     Dates: start: 201703

REACTIONS (8)
  - Fatigue [None]
  - Alopecia [None]
  - Myalgia [None]
  - Hot flush [None]
  - Blood thyroid stimulating hormone abnormal [None]
  - Pruritus [None]
  - Hyperthyroidism [None]
  - Hypothyroidism [None]

NARRATIVE: CASE EVENT DATE: 201704
